FAERS Safety Report 7604487-2 (Version None)
Quarter: 2011Q3

REPORT INFORMATION
  Report Type: 
  Country: None (occurrence: None)
  Receive Date: 20110712
  Receipt Date: 20110705
  Transmission Date: 20111222
  Serious: Yes (Death, Hospitalization, Other)
  Sender: FDA-Public Use
  Company Number: FR-ELI_LILLY_AND_COMPANY-FR201107000820

PATIENT
  Age: 73 Year
  Sex: Female

DRUGS (9)
  1. ACETAMINOPHEN [Concomitant]
     Dosage: UNK, UNKNOWN
     Route: 065
  2. OXAZEPAM [Concomitant]
     Dosage: UNK, UNKNOWN
     Route: 065
  3. IMOVANE [Concomitant]
     Dosage: UNK, UNKNOWN
     Route: 065
  4. ACETAMINOPHEN AND TRAMADOL HCL [Concomitant]
     Dosage: UNK, UNKNOWN
     Route: 065
  5. GLYBURIDE [Concomitant]
     Dosage: UNK, UNKNOWN
     Route: 065
  6. ZESTORETIC [Concomitant]
     Dosage: UNK, UNKNOWN
     Route: 065
  7. GEMZAR [Suspect]
     Indication: PANCREATIC CARCINOMA METASTATIC
     Dosage: UNK, DAY 1, UNKNOWN
     Route: 042
     Dates: start: 20110328
  8. GEMZAR [Suspect]
     Dosage: UNK, DAY 8 UNKNOWN
     Route: 042
     Dates: start: 20110404, end: 20110404
  9. ZOLOFT [Concomitant]
     Dosage: UNK, UNKNOWN
     Route: 065

REACTIONS (5)
  - SKIN ULCER [None]
  - PULMONARY EMBOLISM [None]
  - COR PULMONALE ACUTE [None]
  - OEDEMA PERIPHERAL [None]
  - GENERAL PHYSICAL HEALTH DETERIORATION [None]
